FAERS Safety Report 6976767-5 (Version None)
Quarter: 2010Q3

REPORT INFORMATION
  Report Type: 
  Country: None (occurrence: None)
  Receive Date: 20100910
  Receipt Date: 20100903
  Transmission Date: 20110219
  Serious: Yes (Other)
  Sender: FDA-Public Use
  Company Number: PHHY2010DE59209

PATIENT
  Age: 60 Year
  Sex: Male

DRUGS (1)
  1. LEX [Suspect]
     Route: 048

REACTIONS (1)
  - PERITONITIS [None]
